FAERS Safety Report 15880985 (Version 2)
Quarter: 2019Q1

REPORT INFORMATION
  Report Type: Spontaneous
  Country: IT (occurrence: IT)
  Receive Date: 20190128
  Receipt Date: 20190207
  Transmission Date: 20190417
  Serious: Yes (Hospitalization, Other)
  Sender: FDA-Public Use
  Company Number: IT-MYLANLABS-2019M1007055

PATIENT
  Age: 42 Year
  Sex: Male

DRUGS (1)
  1. TRIAZOLAM. [Suspect]
     Active Substance: TRIAZOLAM
     Indication: PRODUCT USED FOR UNKNOWN INDICATION
     Dosage: UNK
     Route: 065

REACTIONS (10)
  - Dysarthria [Recovered/Resolved]
  - Hypokinesia [Recovered/Resolved]
  - Confusional state [Recovered/Resolved]
  - Toxicity to various agents [Recovered/Resolved]
  - Stupor [Recovered/Resolved]
  - Somnolence [Recovered/Resolved]
  - Loss of consciousness [Recovered/Resolved]
  - Mental disorder [Recovered/Resolved]
  - Disinhibition [Recovered/Resolved]
  - Disorientation [Recovered/Resolved]
